FAERS Safety Report 23570555 (Version 1)
Quarter: 2024Q1

REPORT INFORMATION
  Report Type: Spontaneous
  Country: IT (occurrence: IT)
  Receive Date: 20240227
  Receipt Date: 20240227
  Transmission Date: 20240409
  Serious: Yes (Death, Other)
  Sender: FDA-Public Use
  Company Number: IT-TAKEDA-2024TUS017019

PATIENT
  Age: 66 Year
  Sex: Male

DRUGS (8)
  1. MARIBAVIR [Suspect]
     Active Substance: MARIBAVIR
     Indication: Product used for unknown indication
     Dosage: UNK
     Route: 065
  2. BUDESONIDE [Concomitant]
     Active Substance: BUDESONIDE
     Dosage: UNK
  3. PREDNISOLONE [Concomitant]
     Active Substance: PREDNISOLONE
     Dosage: UNK
  4. FOSCARNET [Concomitant]
     Active Substance: FOSCARNET
     Dosage: 4 GRAM, BID
     Route: 065
     Dates: start: 20210221
  5. FOSCARNET [Concomitant]
     Active Substance: FOSCARNET
     Dosage: 5 GRAM, BID
     Route: 065
  6. Cytomegatect [Concomitant]
     Dosage: UNK
  7. PROBENECID [Concomitant]
     Active Substance: PROBENECID
     Dosage: UNK
  8. CIDOFOVIR [Concomitant]
     Active Substance: CIDOFOVIR
     Dosage: 375 MILLIGRAM
     Route: 065
     Dates: start: 20211019

REACTIONS (4)
  - Multiple organ dysfunction syndrome [Fatal]
  - Acute graft versus host disease in intestine [Unknown]
  - Cytomegalovirus infection reactivation [Unknown]
  - COVID-19 [Unknown]
